FAERS Safety Report 17511449 (Version 1)
Quarter: 2020Q1

REPORT INFORMATION
  Report Type: Spontaneous
  Country: US (occurrence: US)
  Receive Date: 20200306
  Receipt Date: 20200306
  Transmission Date: 20200409
  Serious: Yes (Other)
  Sender: FDA-Public Use
  Company Number: US-PFIZER INC-2020098164

PATIENT
  Age: 73 Year

DRUGS (2)
  1. TIKOSYN [Suspect]
     Active Substance: DOFETILIDE
     Dosage: 2 DF, ALTERNATE DAY( 1 PILL ONE DAY AND 2 THE NEXT DAY)
  2. TIKOSYN [Suspect]
     Active Substance: DOFETILIDE
     Dosage: 1 DF, ALTERNATE DAY( 1 PILL ONE DAY AND 2 THE NEXT DAY)

REACTIONS (3)
  - Product use issue [Unknown]
  - Cardiac arrest [Unknown]
  - Off label use [Unknown]

NARRATIVE: CASE EVENT DATE: 2019
